FAERS Safety Report 10234211 (Version 1)
Quarter: 2014Q2

REPORT INFORMATION
  Report Type: Spontaneous
  Country: US (occurrence: US)
  Receive Date: 20140612
  Receipt Date: 20140612
  Transmission Date: 20141212
  Serious: No
  Sender: FDA-Public Use
  Company Number: US-GILEAD-2014-0104951

PATIENT
  Age: 73 Year
  Sex: Female

DRUGS (7)
  1. LETAIRIS [Suspect]
     Indication: ILL-DEFINED DISORDER
     Dosage: 10 MG, QD
     Route: 065
     Dates: start: 20140205
  2. CLARITIN                           /00413701/ [Concomitant]
  3. AZOPT [Concomitant]
  4. ASPIRIN [Concomitant]
  5. LIPITOR [Concomitant]
  6. COREG [Concomitant]
  7. HYZAAR [Concomitant]

REACTIONS (1)
  - Nasal congestion [Not Recovered/Not Resolved]
